FAERS Safety Report 4788171-9 (Version None)
Quarter: 2005Q3

REPORT INFORMATION
  Report Type: 
  Country: None (occurrence: None)
  Receive Date: 20050920
  Receipt Date: 20041205
  Transmission Date: 20060218
  Serious: No
  Sender: FDA-Public Use
  Company Number: PHEH2003US04359

PATIENT
  Sex: Female

DRUGS (1)
  1. FEMARA [Suspect]

REACTIONS (4)
  - ARTHRALGIA [None]
  - BACK PAIN [None]
  - BONE DENSITY DECREASED [None]
  - BONE PAIN [None]
